FAERS Safety Report 10597810 (Version 1)
Quarter: 2014Q4

REPORT INFORMATION
  Report Type: Spontaneous
  Country: None (occurrence: None)
  Receive Date: 20141105
  Receipt Date: 20141105
  Transmission Date: 20150529
  Serious: Yes (Other)
  Sender: FDA-Public Use
  Company Number: QR79362-01

PATIENT
  Age: 66 Year
  Sex: Female
  Weight: 65 kg

DRUGS (7)
  1. GLUCOMINE [Concomitant]
  2. ELTROXIN [Concomitant]
     Active Substance: LEVOTHYROXINE
  3. FERROCAL; IRON [Concomitant]
  4. GAMMAPLEX [Suspect]
     Active Substance: HUMAN IMMUNOGLOBULIN G
     Indication: MYASTHENIA GRAVIS
     Route: 042
     Dates: start: 20130301, end: 20140303
  5. PYRIDISTIGMINE [Concomitant]
  6. EZETROL [Concomitant]
     Active Substance: EZETIMIBE
  7. CLOPIDOGREL [Concomitant]
     Active Substance: CLOPIDOGREL BISULFATE

REACTIONS (1)
  - Rash [None]

NARRATIVE: CASE EVENT DATE: 20140303
